FAERS Safety Report 7780921-2 (Version None)
Quarter: 2011Q3

REPORT INFORMATION
  Report Type: 
  Country: None (occurrence: None)
  Receive Date: 20110927
  Receipt Date: 20110920
  Transmission Date: 20111222
  Serious: Yes (Hospitalization, Other)
  Sender: FDA-Public Use
  Company Number: US-JNJFOC-20100905315

PATIENT
  Sex: Female
  Weight: 58.97 kg

DRUGS (6)
  1. VALIUM [Concomitant]
     Route: 065
  2. LEVAQUIN [Suspect]
     Indication: ABDOMINAL INFECTION
     Route: 048
     Dates: start: 20100823, end: 20100828
  3. CODEINE SULFATE [Concomitant]
     Route: 065
  4. OXYCODONE [Suspect]
     Indication: PAIN
     Route: 048
     Dates: start: 20100819, end: 20100822
  5. PROMETHAZINE [Suspect]
     Indication: PROPHYLAXIS OF NAUSEA AND VOMITING
     Dosage: EVERY 3-4 HOURS AS NEEDED
     Route: 048
     Dates: start: 20100819, end: 20100822
  6. MORPHINE [Concomitant]
     Route: 065

REACTIONS (6)
  - INTRA-ABDOMINAL HAEMATOMA [None]
  - PYREXIA [None]
  - VISION BLURRED [None]
  - ARTHRALGIA [None]
  - URINARY TRACT OBSTRUCTION [None]
  - PAIN IN EXTREMITY [None]
